FAERS Safety Report 8319676-1 (Version None)
Quarter: 2012Q2

REPORT INFORMATION
  Report Type: 
  Country: None (occurrence: None)
  Receive Date: 20120427
  Receipt Date: 20120423
  Transmission Date: 20120825
  Serious: Yes (Death, Life-Threatening)
  Sender: FDA-Public Use
  Company Number: JP-B.I. PHARMACEUTICALS,INC./RIDGEFIELD-2012-BP-09202NB

PATIENT
  Age: 84 Year
  Sex: Male
  Weight: 52 kg

DRUGS (16)
  1. PRADAXA [Suspect]
     Indication: ATRIAL FIBRILLATION
     Dosage: 220 MG
     Route: 048
     Dates: start: 20110722, end: 20120411
  2. COTRIM [Concomitant]
     Route: 065
  3. MUCODYNE [Concomitant]
     Route: 065
  4. NEORAL [Concomitant]
     Route: 065
  5. ANPEC [Concomitant]
     Route: 065
  6. MAGNESIUM OXIDE [Concomitant]
     Route: 065
  7. ZOLPIDEM [Concomitant]
     Route: 065
  8. OXYCONTIN [Concomitant]
     Route: 065
  9. BROCIN [Concomitant]
     Route: 065
  10. FAMOTIDINE [Concomitant]
     Route: 065
  11. OXINORM [Concomitant]
     Route: 065
  12. SULPIRIDE [Concomitant]
     Route: 065
  13. WARFARIN SODIUM [Concomitant]
     Route: 065
  14. ISOSORBIDE DINITRATE [Concomitant]
     Route: 065
  15. COLDRIN [Concomitant]
     Route: 065
  16. FUNGIZONE [Concomitant]
     Route: 065

REACTIONS (1)
  - INTERSTITIAL LUNG DISEASE [None]
